FAERS Safety Report 16999693 (Version 1)
Quarter: 2019Q4

REPORT INFORMATION
  Report Type: Spontaneous
  Country: FR (occurrence: FR)
  Receive Date: 20191106
  Receipt Date: 20191106
  Transmission Date: 20200122
  Serious: Yes (Other)
  Sender: FDA-Public Use
  Company Number: FR-MYLANLABS-2019M1061370

PATIENT
  Age: 69 Year
  Sex: Female

DRUGS (2)
  1. TAREG [Concomitant]
     Active Substance: VALSARTAN
     Dosage: UNK
  2. BISOPROLOL MYLAN [Suspect]
     Active Substance: BISOPROLOL
     Indication: EXTRASYSTOLES
     Dosage: 2.5 MILLIGRAM
     Route: 048
     Dates: start: 201903

REACTIONS (2)
  - Product use in unapproved indication [Not Recovered/Not Resolved]
  - Arrhythmia [Unknown]

NARRATIVE: CASE EVENT DATE: 2019
